FAERS Safety Report 20351567 (Version 1)
Quarter: 2022Q1

REPORT INFORMATION
  Report Type: Spontaneous
  Country: US (occurrence: None)
  Receive Date: 20220118
  Receipt Date: 20220118
  Transmission Date: 20220423
  Serious: No
  Sender: FDA-Public Use
  Company Number: None

PATIENT
  Age: 17 Year
  Sex: Male
  Weight: 60.5 kg

DRUGS (2)
  1. STELARA [Suspect]
     Active Substance: USTEKINUMAB
     Indication: Colitis ulcerative
     Dates: start: 20211029
  2. STELARA [Concomitant]
     Active Substance: USTEKINUMAB
     Dates: start: 20211029

REACTIONS (3)
  - Rash [None]
  - Acne [None]
  - Infusion related reaction [None]

NARRATIVE: CASE EVENT DATE: 20220118
